FAERS Safety Report 18659748 (Version 1)
Quarter: 2020Q4

REPORT INFORMATION
  Report Type: Other
  Country: IN (occurrence: IN)
  Receive Date: 20201224
  Receipt Date: 20201224
  Transmission Date: 20210114
  Serious: Yes (Hospitalization, Other)
  Sender: FDA-Public Use
  Company Number: IN-ACI HEALTHCARE LIMITED-2103452

PATIENT
  Sex: Female

DRUGS (1)
  1. GABAPENTIN. [Suspect]
     Active Substance: GABAPENTIN
     Indication: NECK PAIN
     Route: 048

REACTIONS (7)
  - Visual impairment [Recovered/Resolved]
  - Symblepharon [Recovered/Resolved]
  - Limbal stem cell deficiency [Recovered/Resolved]
  - Stevens-Johnson syndrome [Unknown]
  - Ulcerative keratitis [Recovered/Resolved]
  - Dry eye [Recovered/Resolved]
  - Keratitis [Recovered/Resolved]
